FAERS Safety Report 5158620-5 (Version None)
Quarter: 2006Q4

REPORT INFORMATION
  Report Type: 
  Country: None (occurrence: None)
  Receive Date: 20061128
  Receipt Date: 20061120
  Transmission Date: 20070319
  Serious: Yes (Death, Other)
  Sender: FDA-Public Use
  Company Number: US-NOVOPROD-258698

PATIENT
  Age: 24 Year
  Sex: Male

DRUGS (3)
  1. NOVOSEVEN [Suspect]
     Indication: INJURY
     Dosage: 7.2 MG, SINGLE
     Route: 042
     Dates: start: 20060501, end: 20060501
  2. RED BLOOD CELLS [Concomitant]
     Indication: INJURY
     Dosage: UNKNOWN
  3. PLASMA [Concomitant]
     Indication: INJURY
     Dosage: UNKNOWN

REACTIONS (1)
  - PULMONARY EMBOLISM [None]
